FAERS Safety Report 7585513-6 (Version None)
Quarter: 2011Q2

REPORT INFORMATION
  Report Type: 
  Country: None (occurrence: None)
  Receive Date: 20110531
  Receipt Date: 20100726
  Transmission Date: 20111010
  Serious: Yes (Hospitalization)
  Sender: FDA-Public Use
  Company Number: WAES 1007USA03353

PATIENT
  Sex: Male

DRUGS (3)
  1. VICTOZA [Suspect]
  2. JANUMET [Suspect]
     Indication: TYPE 2 DIABETES MELLITUS
     Dosage: 1000MG/50 MG/BID/PO
     Route: 048
  3. ACTOS [Concomitant]

REACTIONS (1)
  - PANCREATITIS [None]
